FAERS Safety Report 11132631 (Version 1)
Quarter: 2015Q2

REPORT INFORMATION
  Report Type: Spontaneous
  Country: US (occurrence: US)
  Receive Date: 20150522
  Receipt Date: 20150522
  Transmission Date: 20150821
  Serious: No
  Sender: FDA-Public Use
  Company Number: US-MALLINCKRODT-QSC-2014-0393

PATIENT
  Age: 51 Year
  Sex: Female

DRUGS (6)
  1. H.P. ACTHAR [Suspect]
     Active Substance: CORTICOTROPIN
     Indication: GLOMERULONEPHRITIS MEMBRANOPROLIFERATIVE
     Dosage: 80 UNITS, BIW
     Route: 058
     Dates: start: 20140523
  2. H.P. ACTHAR [Suspect]
     Active Substance: CORTICOTROPIN
     Dosage: 40 UNITS, BIW
     Route: 058
     Dates: start: 20140509, end: 201405
  3. NEURAL                             /00324901/ [Concomitant]
     Dosage: 100 MG, UNK
  4. LASIX [Concomitant]
     Active Substance: FUROSEMIDE
     Dosage: 20 MG, UNK
  5. ZYRTEC [Concomitant]
     Active Substance: CETIRIZINE HYDROCHLORIDE
     Dosage: 10 MG, UNK
  6. LISINOPRIL. [Concomitant]
     Active Substance: LISINOPRIL
     Dosage: 10 MG, UNK

REACTIONS (4)
  - Blepharospasm [Unknown]
  - Muscular weakness [Recovered/Resolved]
  - Blood pressure systolic increased [Not Recovered/Not Resolved]
  - Tremor [Recovered/Resolved]

NARRATIVE: CASE EVENT DATE: 201405
